FAERS Safety Report 4333951-7 (Version None)
Quarter: 2004Q2

REPORT INFORMATION
  Report Type: 
  Country: None (occurrence: None)
  Receive Date: 20040406
  Receipt Date: 20040406
  Transmission Date: 20050107
  Serious: Yes (Hospitalization)
  Sender: FDA-Public Use
  Company Number: None

PATIENT
  Age: 12 Year
  Sex: Female
  Weight: 44 kg

DRUGS (9)
  1. METHOTREXATE [Suspect]
     Indication: BONE SARCOMA
     Dosage: 17 GM/ X 1/ IV
     Route: 042
     Dates: start: 20030703, end: 20030703
  2. METHOTREXATE [Suspect]
  3. NAHCO3 [Concomitant]
  4. ZOFRAN [Concomitant]
  5. BENADRYL [Concomitant]
  6. PHENERGAN [Concomitant]
  7. METHADONE HCL [Concomitant]
  8. NEURONTIN [Concomitant]
  9. COLACE [Concomitant]

REACTIONS (1)
  - RENAL DISORDER [None]
